FAERS Safety Report 6172436-2 (Version None)
Quarter: 2009Q2

REPORT INFORMATION
  Report Type: 
  Country: None (occurrence: None)
  Receive Date: 20090429
  Receipt Date: 20090420
  Transmission Date: 20091009
  Serious: Yes (Death)
  Sender: FDA-Public Use
  Company Number: US-SANOFI-SYNTHELABO-A03200901441

PATIENT
  Sex: Male

DRUGS (23)
  1. PLAVIX [Suspect]
     Indication: CORONARY ARTERY DISEASE
     Route: 048
     Dates: start: 20080616
  2. HYDROCHLOROTHIAZIDE [Concomitant]
     Indication: BLOOD PRESSURE
     Route: 048
     Dates: start: 20080616
  3. COUMADIN [Concomitant]
     Indication: DEEP VEIN THROMBOSIS
     Dosage: UNK
     Route: 048
     Dates: end: 20090217
  4. COUMADIN [Concomitant]
     Dosage: 10MG ON WED, 7.5MG ON SUN, MON, TUES, THURS, FRI, SAT
     Route: 048
     Dates: start: 20090218
  5. DOXAZOSIN MESYLATE [Concomitant]
     Indication: BLOOD PRESSURE
     Dosage: UNK
     Route: 048
     Dates: end: 20090322
  6. DOXAZOSIN MESYLATE [Concomitant]
     Route: 048
     Dates: start: 20090323
  7. METOPROLOL TARTRATE [Concomitant]
     Indication: BLOOD PRESSURE
     Route: 048
     Dates: start: 20060612
  8. METOPROLOL TARTRATE [Concomitant]
     Indication: CORONARY ARTERY DISEASE
     Route: 048
     Dates: start: 20060612
  9. ISOSORBIDE MONONITRATE [Concomitant]
     Indication: CORONARY ARTERY DISEASE
     Route: 048
     Dates: start: 20060109
  10. ASPIRIN [Concomitant]
     Indication: CORONARY ARTERY DISEASE
     Route: 048
     Dates: start: 19931105
  11. FISH OIL [Concomitant]
     Indication: BLOOD CHOLESTEROL INCREASED
     Dosage: 2 TABLETS DAILY
     Route: 048
     Dates: start: 20061023
  12. ALBUTEROL [Concomitant]
     Indication: ASTHMA
     Dosage: 1-2 PUFFS EVERY FOUR TO SIX HOURS AS NEEDED
     Route: 048
     Dates: start: 20060825
  13. GABAPENTIN [Concomitant]
     Indication: DIABETIC NEUROPATHY
     Route: 048
     Dates: start: 20081103
  14. RANITIDINE [Concomitant]
     Indication: GASTROOESOPHAGEAL REFLUX DISEASE
     Route: 048
     Dates: start: 20051102
  15. LISINOPRIL [Concomitant]
     Indication: BLOOD PRESSURE
     Route: 048
     Dates: start: 20040416
  16. NIASPAN [Concomitant]
     Indication: BLOOD CHOLESTEROL INCREASED
     Dosage: UNK
     Route: 048
     Dates: end: 20090322
  17. NIASPAN [Concomitant]
     Indication: CORONARY ARTERY DISEASE
     Dosage: UNK
     Route: 048
     Dates: end: 20090322
  18. NIASPAN [Concomitant]
     Route: 048
     Dates: start: 20090323
  19. NIASPAN [Concomitant]
     Route: 048
     Dates: start: 20090323
  20. LIPITOR [Concomitant]
     Indication: BLOOD CHOLESTEROL INCREASED
     Route: 048
     Dates: start: 20080616
  21. LIPITOR [Concomitant]
     Indication: CORONARY ARTERY DISEASE
     Route: 048
     Dates: start: 20080616
  22. JANTOVEN [Concomitant]
     Indication: DIABETES MELLITUS
     Route: 048
     Dates: start: 20090209
  23. DIAZEPAM [Concomitant]
     Indication: ANXIETY
     Route: 048
     Dates: start: 20060612

REACTIONS (1)
  - MYOCARDIAL INFARCTION [None]
